FAERS Safety Report 22096123 (Version 2)
Quarter: 2023Q1

REPORT INFORMATION
  Report Type: Report from Study
  Country: US (occurrence: US)
  Receive Date: 20230315
  Receipt Date: 20230316
  Transmission Date: 20230418
  Serious: Yes (Other)
  Sender: FDA-Public Use
  Company Number: US-ABBVIE-4340098

PATIENT
  Sex: Male
  Weight: 94 kg

DRUGS (5)
  1. IMBRUVICA [Suspect]
     Active Substance: IBRUTINIB
     Indication: Chronic lymphocytic leukaemia
     Dosage: 280 MILLIGRAM
     Route: 048
     Dates: start: 202201
  2. IMBRUVICA [Suspect]
     Active Substance: IBRUTINIB
     Indication: Chronic lymphocytic leukaemia
     Dosage: 420 MILLIGRAM
     Route: 048
     Dates: start: 20190501, end: 202201
  3. IMBRUVICA [Suspect]
     Active Substance: IBRUTINIB
     Indication: Chronic lymphocytic leukaemia
     Route: 048
  4. ATORVASTATIN [Concomitant]
     Active Substance: ATORVASTATIN
     Indication: Blood cholesterol
  5. LEVOTHYROXINE [Concomitant]
     Active Substance: LEVOTHYROXINE
     Indication: Thyroid disorder

REACTIONS (9)
  - Skin cancer [Not Recovered/Not Resolved]
  - Fatigue [Not Recovered/Not Resolved]
  - Skin disorder [Unknown]
  - Contusion [Not Recovered/Not Resolved]
  - Muscle spasms [Not Recovered/Not Resolved]
  - Haemorrhage [Not Recovered/Not Resolved]
  - Muscle spasms [Not Recovered/Not Resolved]
  - Stomatitis [Not Recovered/Not Resolved]
  - Drug hypersensitivity [Unknown]
